FAERS Safety Report 9047199 (Version 1)
Quarter: 2013Q1

REPORT INFORMATION
  Report Type: Report from Study
  Country: US (occurrence: US)
  Receive Date: 20130130
  Receipt Date: 20130130
  Transmission Date: 20140127
  Serious: No
  Sender: FDA-Public Use
  Company Number: US-ABBOTT-12P-163-0977976-00

PATIENT
  Age: 60 Year
  Sex: Male

DRUGS (3)
  1. HUMIRA [Suspect]
     Route: 058
     Dates: start: 2010, end: 201201
  2. METFORMIN [Concomitant]
     Indication: DIABETES MELLITUS
  3. BLOOD PRESSURE MEDICATION [Concomitant]
     Indication: HYPERTENSION

REACTIONS (5)
  - Pulmonary oedema [Recovered/Resolved]
  - Influenza [Recovered/Resolved]
  - Bronchitis [Recovered/Resolved]
  - Nasopharyngitis [Recovered/Resolved]
  - Psoriasis [Unknown]
